FAERS Safety Report 4359924-6 (Version None)
Quarter: 2004Q2

REPORT INFORMATION
  Report Type: 
  Country: None (occurrence: None)
  Receive Date: 20040518
  Receipt Date: 20040226
  Transmission Date: 20050107
  Serious: Yes (Other)
  Sender: FDA-Public Use
  Company Number: PHEH2004US02447

PATIENT
  Age: 75 Year
  Sex: Female

DRUGS (11)
  1. AREDIA [Suspect]
     Indication: BREAST CANCER METASTATIC
     Dosage: 90 MG, QMO
     Dates: start: 20000901, end: 20020401
  2. ZOMETA [Suspect]
     Indication: BREAST CANCER METASTATIC
     Dosage: 4 MG, QMO
     Dates: start: 20020501
  3. TAMOXIFEN CITRATE [Concomitant]
     Dosage: 20 MG, UNK
     Dates: start: 20000901, end: 20010120
  4. ARIMIDEX [Concomitant]
     Dosage: 1 MG, UNK
     Dates: start: 20010122
  5. FOSAMAX [Concomitant]
  6. VIOXX [Concomitant]
     Dosage: 25 MG, QD
  7. NEXIUM [Concomitant]
  8. REGLAN [Concomitant]
     Dosage: UNK, PRN
  9. ATIVAN [Concomitant]
     Dosage: 1 MG, TID
  10. OXYCONTIN [Concomitant]
     Dosage: 20 MG, BID
  11. ACEON [Concomitant]
     Dosage: 4 MG, QD

REACTIONS (29)
  - ABSCESS JAW [None]
  - ABSCESS SOFT TISSUE [None]
  - ACTINOMYCOSIS [None]
  - ALVEOLOPLASTY [None]
  - ATRIAL FIBRILLATION [None]
  - ERYTHEMA [None]
  - EXCESSIVE GRANULATION TISSUE [None]
  - EYE PAIN [None]
  - FISTULA [None]
  - GINGIVITIS [None]
  - INFECTION [None]
  - INFLAMMATION [None]
  - JAW OPERATION [None]
  - NECK PAIN [None]
  - ORAL INFECTION [None]
  - ORAL PAIN [None]
  - ORAL SURGERY [None]
  - OSTEOMYELITIS [None]
  - OSTEONECROSIS [None]
  - PAIN [None]
  - PAIN IN JAW [None]
  - PAPILLOMA [None]
  - PURULENCE [None]
  - SECRETION DISCHARGE [None]
  - STREPTOCOCCAL INFECTION [None]
  - TOOTH EXTRACTION [None]
  - TOOTH INJURY [None]
  - TOOTHACHE [None]
  - WOUND DEBRIDEMENT [None]
